FAERS Safety Report 4900626-2 (Version None)
Quarter: 2006Q1

REPORT INFORMATION
  Report Type: 
  Country: None (occurrence: None)
  Receive Date: 20060203
  Receipt Date: 20051205
  Transmission Date: 20060701
  Serious: Yes (Other)
  Sender: FDA-Public Use
  Company Number: JP-BRISTOL-MYERS SQUIBB COMPANY-13205992

PATIENT
  Age: 43 Year
  Sex: Female

DRUGS (6)
  1. FUNGIZONE [Suspect]
     Indication: SYSTEMIC CANDIDA
     Route: 042
     Dates: start: 20051130, end: 20051130
  2. MEROPEN [Concomitant]
     Route: 042
     Dates: start: 20051125, end: 20051220
  3. TARGOCID [Concomitant]
     Route: 042
     Dates: start: 20051125, end: 20051230
  4. MEYLON [Concomitant]
     Route: 042
     Dates: start: 20051122, end: 20051206
  5. INOVAN [Concomitant]
     Route: 042
     Dates: start: 20051108, end: 20051130
  6. PROGRAF [Concomitant]
     Route: 048
     Dates: start: 20051128, end: 20051130

REACTIONS (6)
  - ACCIDENTAL OVERDOSE [None]
  - HAEMODIALYSIS [None]
  - MEDICATION ERROR [None]
  - RENAL FAILURE ACUTE [None]
  - WHITE BLOOD CELL COUNT DECREASED [None]
  - WRONG DRUG ADMINISTERED [None]
